FAERS Safety Report 6287618-9 (Version None)
Quarter: 2009Q3

REPORT INFORMATION
  Report Type: 
  Country: None (occurrence: None)
  Receive Date: 20090727
  Receipt Date: 20090727
  Transmission Date: 20100115
  Serious: Yes (Life-Threatening, Hospitalization)
  Sender: FDA-Public Use
  Company Number: None

PATIENT
  Sex: Female
  Weight: 90.7194 kg

DRUGS (1)
  1. SAVELLA [Suspect]
     Indication: FIBROMYALGIA
     Dosage: 50 MG PER TAB 2X DAY BY MOUTH LAST WEEK OF JUNE TO JULY 10TH ^2009^
     Route: 048
     Dates: start: 20090601, end: 20090710

REACTIONS (4)
  - ASTHENIA [None]
  - HYPERHIDROSIS [None]
  - MENORRHAGIA [None]
  - PALPITATIONS [None]
